FAERS Safety Report 8587771-8 (Version None)
Quarter: 2012Q3

REPORT INFORMATION
  Report Type: 
  Country: None (occurrence: None)
  Receive Date: 20120813
  Receipt Date: 20120803
  Transmission Date: 20120928
  Serious: Yes (Other)
  Sender: FDA-Public Use
  Company Number: FR-BIOGENIDEC-2010BI019714

PATIENT
  Age: 52 Year
  Sex: Female

DRUGS (17)
  1. ALPRAZOLAM [Concomitant]
  2. ANTI-INFECTIVE (NOS) [Concomitant]
  3. EFFEXOR [Concomitant]
  4. TYSABRI [Suspect]
     Indication: MULTIPLE SCLEROSIS
     Route: 042
     Dates: start: 20070809, end: 20100416
  5. NEUROLEPTIC (NOS) [Concomitant]
  6. ANTICOAGULANT (NOS) [Concomitant]
  7. MUSCLE RELAXANT (NOS) [Concomitant]
  8. ANALGESIC [Concomitant]
  9. KETOPROFEN [Concomitant]
  10. LEXOMIL [Concomitant]
     Indication: DEPRESSION
  11. CLONAZEPAM [Concomitant]
  12. ACETAMINOPHEN [Concomitant]
  13. ANTIDEPRESSANTS (NOS) [Concomitant]
  14. PREGABALIN [Concomitant]
     Indication: DEPRESSION
  15. MODAFINIL [Concomitant]
     Indication: DEPRESSION
  16. ALFUZOSIN HYDROCHLORIDE [Concomitant]
     Indication: DEPRESSION
  17. PROZAC [Concomitant]
     Indication: DEPRESSION

REACTIONS (1)
  - NUCLEAR MAGNETIC RESONANCE IMAGING ABNORMAL [None]
